FAERS Safety Report 5297788-7 (Version None)
Quarter: 2007Q2

REPORT INFORMATION
  Report Type: 
  Country: None (occurrence: None)
  Receive Date: 20070416
  Receipt Date: 20070403
  Transmission Date: 20071010
  Serious: Yes (Other)
  Sender: FDA-Public Use
  Company Number: PHEH2007US04348

PATIENT
  Sex: Female

DRUGS (3)
  1. ZELNORM [Suspect]
     Indication: IRRITABLE BOWEL SYNDROME
     Dosage: 6 MG, BID
     Dates: start: 20060101, end: 20070403
  2. PREMARIN [Concomitant]
  3. ELAVIL [Concomitant]

REACTIONS (3)
  - BACK PAIN [None]
  - BLOOD URINE PRESENT [None]
  - KIDNEY INFECTION [None]
